FAERS Safety Report 7259167 (Version 5)
Quarter: 2015Q1

REPORT INFORMATION
  Report Type: Spontaneous
  Country: GB (occurrence: GB)
  Receive Date: 20100128
  Receipt Date: 20150112
  Transmission Date: 20150721
  Serious: Yes (Hospitalization, Other)
  Sender: FDA-Public Use
  Company Number: GB-ELI_LILLY_AND_COMPANY-GB201001004006

PATIENT
  Age: 37 Year
  Sex: Female

DRUGS (3)
  1. HALDOL [Concomitant]
     Active Substance: HALOPERIDOL
  2. ZYPREXA [Suspect]
     Active Substance: OLANZAPINE
     Dosage: 35 MG, UNK
  3. ZYPREXA [Suspect]
     Active Substance: OLANZAPINE
     Indication: PSYCHOTIC DISORDER
     Dosage: 10 MG, QD
     Dates: start: 1999

REACTIONS (8)
  - Suicide attempt [Recovered/Resolved]
  - Prescribed overdose [Unknown]
  - Intentional product misuse [Unknown]
  - Renal failure [Recovered/Resolved]
  - Malaise [Unknown]
  - Wrong technique in drug usage process [Unknown]
  - Urine abnormality [Recovered/Resolved]
  - Hallucination, auditory [Unknown]

NARRATIVE: CASE EVENT DATE: 1999
